FAERS Safety Report 6630873-3 (Version None)
Quarter: 2010Q1

REPORT INFORMATION
  Report Type: 
  Country: None (occurrence: None)
  Receive Date: 20100311
  Receipt Date: 20100302
  Transmission Date: 20100710
  Serious: Yes (Hospitalization, Other)
  Sender: FDA-Public Use
  Company Number: US-BAXTER-2010BH006308

PATIENT
  Age: 49 Year
  Sex: Male

DRUGS (5)
  1. DIANEAL [Suspect]
     Indication: PERITONEAL DIALYSIS
     Route: 033
     Dates: start: 20090401, end: 20090701
  2. DIANEAL [Suspect]
     Route: 033
     Dates: start: 20090701, end: 20091120
  3. DIANEAL [Suspect]
     Indication: PERITONEAL DIALYSIS
     Route: 033
     Dates: start: 20090401, end: 20090701
  4. DIANEAL [Suspect]
     Route: 033
     Dates: start: 20090701, end: 20091214
  5. NPH INSULIN [Concomitant]
     Indication: DIABETES MELLITUS
     Route: 058

REACTIONS (14)
  - ABDOMINAL DISTENSION [None]
  - ABDOMINAL PAIN [None]
  - ACUTE MYOCARDIAL INFARCTION [None]
  - BLOOD PRESSURE INCREASED [None]
  - DECREASED APPETITE [None]
  - DIABETIC KETOACIDOSIS [None]
  - DIARRHOEA [None]
  - DYSPNOEA [None]
  - HEADACHE [None]
  - HYPOPHAGIA [None]
  - NAUSEA [None]
  - PERICARDIAL EFFUSION [None]
  - PULMONARY OEDEMA [None]
  - VOMITING [None]
